FAERS Safety Report 5105788-2 (Version None)
Quarter: 2006Q3

REPORT INFORMATION
  Report Type: 
  Country: None (occurrence: None)
  Receive Date: 20060915
  Receipt Date: 20060727
  Transmission Date: 20061208
  Serious: Yes (Hospitalization)
  Sender: FDA-Public Use
  Company Number: AU-NOVOPROD-255738

PATIENT
  Age: 33 Year
  Sex: Male
  Weight: 65 kg

DRUGS (4)
  1. NOVOLOG MIX 70/30 [Suspect]
     Indication: DIABETES MELLITUS INSULIN-DEPENDENT
     Dosage: 52 IU, QD
     Route: 058
     Dates: start: 20060701, end: 20060808
  2. NOVOLOG MIX 70/30 [Suspect]
     Dosage: 8 IE, QD
     Dates: start: 20060728
  3. NOVORAPID [Concomitant]
     Indication: DIABETES MELLITUS INSULIN-DEPENDENT
     Dosage: 6+ 6+ 6 IU
     Dates: start: 20060809
  4. LANTUS [Concomitant]
     Dosage: 10 IU, NOCTE
     Dates: start: 20060809

REACTIONS (2)
  - BLOOD GLUCOSE INCREASED [None]
  - MUSCLE SPASMS [None]
